FAERS Safety Report 20516607 (Version 1)
Quarter: 2022Q1

REPORT INFORMATION
  Report Type: Spontaneous
  Country: US (occurrence: US)
  Receive Date: 20220225
  Receipt Date: 20220225
  Transmission Date: 20220423
  Serious: No
  Sender: FDA-Public Use
  Company Number: US-DECIPHERA PHARMACEUTICALS LLC-2022US000155

PATIENT
  Sex: Male

DRUGS (1)
  1. QINLOCK [Suspect]
     Active Substance: RIPRETINIB
     Indication: Product used for unknown indication
     Dosage: 150 MILLIGRAM, QD
     Route: 048

REACTIONS (7)
  - Memory impairment [Unknown]
  - Hypoaesthesia [Unknown]
  - Hypersomnia [Unknown]
  - Fatigue [Unknown]
  - Dry skin [Unknown]
  - Constipation [Unknown]
  - Nausea [Unknown]
